FAERS Safety Report 6148609-1 (Version None)
Quarter: 2009Q2

REPORT INFORMATION
  Report Type: 
  Country: None (occurrence: None)
  Receive Date: 20090408
  Receipt Date: 20080612
  Transmission Date: 20091009
  Serious: No
  Sender: FDA-Public Use
  Company Number: US-TYCO HEALTHCARE/MALLINCKRODT-T200801007

PATIENT

DRUGS (3)
  1. NALTREXONE HYDROCHLORIDE [Suspect]
     Indication: AUTISM
     Dosage: 100 MG, QD
     Route: 048
     Dates: start: 19980101
  2. NALTREXONE HYDROCHLORIDE [Suspect]
     Indication: SELF INJURIOUS BEHAVIOUR
  3. VYTORIN [Concomitant]
     Indication: BLOOD CHOLESTEROL INCREASED
     Dosage: UNK, QD
     Route: 048

REACTIONS (1)
  - DERMATITIS [None]
